FAERS Safety Report 13702626 (Version 2)
Quarter: 2017Q3

REPORT INFORMATION
  Report Type: Spontaneous
  Country: US (occurrence: US)
  Receive Date: 20170629
  Receipt Date: 20170703
  Transmission Date: 20171127
  Serious: Yes (Other)
  Sender: FDA-Public Use
  Company Number: US-FRESENIUS KABI-FK201705536

PATIENT
  Age: 72 Year
  Sex: Male
  Weight: 103 kg

DRUGS (8)
  1. VALPROATE [Interacting]
     Active Substance: VALPROIC ACID
     Route: 065
  2. VALPROATE [Interacting]
     Active Substance: VALPROIC ACID
     Route: 065
  3. SALICYLATE [Suspect]
     Active Substance: SALICYLIC ACID
     Indication: PRODUCT USED FOR UNKNOWN INDICATION
     Route: 065
  4. VALPROATE [Interacting]
     Active Substance: VALPROIC ACID
     Route: 065
  5. VALPROATE [Interacting]
     Active Substance: VALPROIC ACID
     Route: 065
  6. PROPOFOL (MANUFACTURER UNKNOWN) [Interacting]
     Active Substance: PROPOFOL
     Indication: PRODUCT USED FOR UNKNOWN INDICATION
     Route: 041
  7. VALPROATE [Suspect]
     Active Substance: VALPROIC ACID
     Indication: PRODUCT USED FOR UNKNOWN INDICATION
     Route: 065
  8. VALPROATE [Interacting]
     Active Substance: VALPROIC ACID
     Route: 065

REACTIONS (4)
  - Incorrect dose administered [Unknown]
  - Hyperammonaemia [Unknown]
  - Hepatic function abnormal [Unknown]
  - Drug interaction [Unknown]
